FAERS Safety Report 17137073 (Version 1)
Quarter: 2019Q4

REPORT INFORMATION
  Report Type: Spontaneous
  Country: US (occurrence: US)
  Receive Date: 20191210
  Receipt Date: 20191210
  Transmission Date: 20200122
  Serious: No
  Sender: FDA-Public Use
  Company Number: US-TEVA-2019-US-1148182

PATIENT
  Sex: Female

DRUGS (1)
  1. CAMRESE [Suspect]
     Active Substance: ETHINYL ESTRADIOL\LEVONORGESTREL
     Dosage: FORM STRENGTH: ETHINYLESTRADIOL W/LEVONORGESTREL, UNIT WAS NOT PROVIDED
     Route: 065

REACTIONS (1)
  - Vaginal haemorrhage [Unknown]
